FAERS Safety Report 4485751-5 (Version None)
Quarter: 2004Q4

REPORT INFORMATION
  Report Type: 
  Country: None (occurrence: None)
  Receive Date: 20041022
  Receipt Date: 20041018
  Transmission Date: 20050328
  Serious: Yes (Hospitalization)
  Sender: FDA-Public Use
  Company Number: 200412881GDS

PATIENT
  Age: 16 Year
  Sex: Female

DRUGS (2)
  1. EXCEDRIN (ACETAMINOPHEN 250 MG, ASPIRIN 250 MG, AND CAFFEINE 65 MG) [Suspect]
     Indication: HEADACHE
  2. DEXTRO AMPHETAMINE SULFATE TAB [Suspect]
     Indication: ATTENTION DEFICIT/HYPERACTIVITY DISORDER
     Dosage: 10 MG, TOTAL DAILY

REACTIONS (10)
  - ANXIETY [None]
  - DRUG SCREEN POSITIVE [None]
  - HEADACHE [None]
  - HEART RATE IRREGULAR [None]
  - HYPERREFLEXIA [None]
  - MYOCLONUS [None]
  - PALPITATIONS [None]
  - SOMNOLENCE [None]
  - STRESS SYMPTOMS [None]
  - TACHYCARDIA [None]
